FAERS Safety Report 22016119 (Version 1)
Quarter: 2023Q1

REPORT INFORMATION
  Report Type: Spontaneous
  Country: US (occurrence: US)
  Receive Date: 20230221
  Receipt Date: 20230221
  Transmission Date: 20230418
  Serious: Yes (Life-Threatening, Hospitalization, Other)
  Sender: FDA-Public Use
  Company Number: US-drreddys-SPO/USA/23/0161229

PATIENT
  Age: 28 Year
  Sex: Male

DRUGS (1)
  1. FENTANYL CITRATE [Suspect]
     Active Substance: FENTANYL CITRATE
     Indication: Product used for unknown indication

REACTIONS (10)
  - Cerebral ischaemia [Recovering/Resolving]
  - Deafness bilateral [Recovered/Resolved]
  - Rhabdomyolysis [Recovering/Resolving]
  - Mouth haemorrhage [Recovering/Resolving]
  - Ischaemic hepatitis [Recovering/Resolving]
  - Acute kidney injury [Recovering/Resolving]
  - Toxicity to various agents [Unknown]
  - Respiratory depression [Recovering/Resolving]
  - Overdose [Unknown]
  - Drug abuse [Unknown]
